FAERS Safety Report 8281625-2 (Version None)
Quarter: 2012Q2

REPORT INFORMATION
  Report Type: 
  Country: None (occurrence: None)
  Receive Date: 20120413
  Receipt Date: 20120403
  Transmission Date: 20120825
  Serious: Yes (Hospitalization)
  Sender: FDA-Public Use
  Company Number: CA-JNJFOC-20120401650

PATIENT
  Sex: Female
  Weight: 57 kg

DRUGS (3)
  1. CIPROFLOXACIN HCL [Concomitant]
     Dosage: FOR 10 DAYS
     Route: 065
  2. UNKNOWN MEDICATION [Concomitant]
     Route: 065
  3. REMICADE [Suspect]
     Indication: CROHN'S DISEASE
     Route: 042
     Dates: start: 20100329

REACTIONS (1)
  - INTESTINAL MASS [None]
